FAERS Safety Report 9277771 (Version 1)
Quarter: 2013Q2

REPORT INFORMATION
  Report Type: Spontaneous
  Country: US (occurrence: US)
  Receive Date: 20130508
  Receipt Date: 20130508
  Transmission Date: 20140414
  Serious: Yes (Death)
  Sender: FDA-Public Use
  Company Number: US-NAPPMUNDI-USA-2013-0101785

PATIENT
  Age: 25 Year
  Sex: Male

DRUGS (1)
  1. OXYCONTIN (NDA 22-272) [Suspect]
     Indication: HEADACHE
     Dosage: UNKNOWN
     Route: 048

REACTIONS (2)
  - Death [Fatal]
  - Intentional drug misuse [Unknown]
